FAERS Safety Report 6607372-8 (Version None)
Quarter: 2010Q1

REPORT INFORMATION
  Report Type: 
  Country: None (occurrence: None)
  Receive Date: 20100301
  Receipt Date: 20100219
  Transmission Date: 20100710
  Serious: Yes (Other)
  Sender: FDA-Public Use
  Company Number: US-BIOGENIDEC-2010BI005867

PATIENT
  Age: 56 Year
  Sex: Female

DRUGS (4)
  1. AVONEX [Suspect]
     Indication: MULTIPLE SCLEROSIS
     Route: 030
     Dates: start: 20010313
  2. AVONEX [Suspect]
     Route: 030
     Dates: end: 20100101
  3. BACLOFEN [Concomitant]
  4. ROBAXIN [Concomitant]

REACTIONS (1)
  - HEPATOMEGALY [None]
